FAERS Safety Report 21862658 (Version 2)
Quarter: 2023Q1

REPORT INFORMATION
  Report Type: Report from Study
  Country: US (occurrence: US)
  Receive Date: 20230114
  Receipt Date: 20230314
  Transmission Date: 20230418
  Serious: No
  Sender: FDA-Public Use
  Company Number: US-ABBVIE-4239471

PATIENT
  Sex: Male

DRUGS (3)
  1. HUMIRA [Suspect]
     Active Substance: ADALIMUMAB
     Indication: Psoriatic arthropathy
     Dosage: FORM STRENGTH: 40 MILLIGRAM, CITRATE FREE
     Route: 058
  2. HUMIRA [Suspect]
     Active Substance: ADALIMUMAB
     Indication: Ankylosing spondylitis
  3. FLURBIPROFEN [Concomitant]
     Active Substance: FLURBIPROFEN
     Indication: Ankylosing spondylitis
     Dosage: FORM STRENGTH: 10 MILLIGRAM
     Route: 048

REACTIONS (5)
  - Bleeding time prolonged [Unknown]
  - Pain [Recovering/Resolving]
  - Injection site swelling [Unknown]
  - Neck pain [Recovering/Resolving]
  - Haemorrhage [Unknown]
